FAERS Safety Report 6834791-7 (Version None)
Quarter: 2010Q3

REPORT INFORMATION
  Report Type: 
  Country: None (occurrence: None)
  Receive Date: 20100712
  Receipt Date: 20070424
  Transmission Date: 20110219
  Serious: No
  Sender: FDA-Public Use
  Company Number: US-PFIZER INC-2007034435

PATIENT
  Sex: Female
  Weight: 90.909 kg

DRUGS (4)
  1. CHANTIX [Suspect]
     Indication: SMOKING CESSATION THERAPY
     Route: 048
     Dates: start: 20070304
  2. LEXAPRO [Concomitant]
  3. SYNTHROID [Concomitant]
  4. VYTORIN [Concomitant]

REACTIONS (1)
  - ACNE [None]
